FAERS Safety Report 6275076-X (Version None)
Quarter: 2009Q3

REPORT INFORMATION
  Report Type: 
  Country: None (occurrence: None)
  Receive Date: 20090721
  Receipt Date: 20090710
  Transmission Date: 20100115
  Serious: Yes (Other)
  Sender: FDA-Public Use
  Company Number: US-ROCHE-643759

PATIENT
  Sex: Female
  Weight: 61.7 kg

DRUGS (13)
  1. BONIVA [Suspect]
     Indication: OSTEOPOROSIS
     Route: 048
     Dates: start: 20050601, end: 20070831
  2. FOSAMAX [Suspect]
     Indication: OSTEOPOROSIS
     Route: 048
     Dates: start: 20010430, end: 20050531
  3. PHENERGAN EXPECTORANT W/ CODEINE [Suspect]
     Indication: BRONCHITIS
     Route: 065
     Dates: start: 20060206
  4. PREMARIN [Concomitant]
     Indication: OSTEOPOROSIS
     Dates: start: 19950101
  5. VALTREX [Concomitant]
  6. PROZAC [Concomitant]
     Indication: DEPRESSION
  7. AMOXICILLIN [Concomitant]
  8. XANAX [Concomitant]
     Dates: start: 19800101
  9. ALEVE [Concomitant]
     Indication: NECK INJURY
     Dates: start: 20000201
  10. IBUPROFEN [Concomitant]
  11. VICODIN [Concomitant]
  12. VALIUM [Concomitant]
  13. AUGMENTIN [Concomitant]
     Indication: BRONCHITIS
     Dates: start: 20060206

REACTIONS (15)
  - ACTINIC KERATOSIS [None]
  - AGEUSIA [None]
  - ANOSMIA [None]
  - BLOOD CHOLESTEROL INCREASED [None]
  - BRONCHITIS [None]
  - FATIGUE [None]
  - HALLUCINATION [None]
  - NASAL CONGESTION [None]
  - ORAL DISORDER [None]
  - OSTEOMYELITIS [None]
  - OSTEONECROSIS [None]
  - POSTNASAL DRIP [None]
  - TOOTH ABSCESS [None]
  - TOOTH INFECTION [None]
  - WEIGHT DECREASED [None]
